FAERS Safety Report 22012805 (Version 2)
Quarter: 2023Q1

REPORT INFORMATION
  Report Type: Spontaneous
  Country: US (occurrence: US)
  Receive Date: 20230220
  Receipt Date: 20230310
  Transmission Date: 20230418
  Serious: Yes (Hospitalization, Other)
  Sender: FDA-Public Use
  Company Number: US-TEVA-2023-US-2857393

PATIENT
  Age: 50 Year
  Sex: Female

DRUGS (5)
  1. METRONIDAZOLE [Suspect]
     Active Substance: METRONIDAZOLE
     Indication: Streptococcal infection
     Route: 042
  2. VANCOMYCIN [Suspect]
     Active Substance: VANCOMYCIN
     Indication: Streptococcal infection
     Route: 042
  3. CEFEPIME [Suspect]
     Active Substance: CEFEPIME HYDROCHLORIDE
     Indication: Streptococcal infection
     Route: 042
  4. CERTOLIZUMAB PEGOL [Suspect]
     Active Substance: CERTOLIZUMAB PEGOL
     Indication: Crohn^s disease
     Route: 065
  5. CEFTRIAXONE [Suspect]
     Active Substance: CEFTRIAXONE
     Indication: Streptococcal infection
     Route: 065

REACTIONS (5)
  - Drug ineffective [Unknown]
  - Sinusitis bacterial [Recovered/Resolved]
  - Streptococcal infection [Recovered/Resolved]
  - Abscess neck [Recovered/Resolved]
  - Tongue paralysis [Recovered/Resolved]
